FAERS Safety Report 7564896-7 (Version None)
Quarter: 2011Q2

REPORT INFORMATION
  Report Type: 
  Country: None (occurrence: None)
  Receive Date: 20110622
  Receipt Date: 20110203
  Transmission Date: 20111010
  Serious: Yes (Death)
  Sender: FDA-Public Use
  Company Number: US-MYLANLABS-2011S1002460

PATIENT
  Age: 56 Year
  Sex: Male

DRUGS (13)
  1. CLONAZEPAM [Concomitant]
     Route: 048
  2. LEXAPRO [Concomitant]
     Route: 048
  3. CAPTOPRIL [Concomitant]
     Route: 048
  4. ALBUTEROL SULFATE AUTOHALER [Concomitant]
     Route: 055
  5. SPIRIVA [Concomitant]
     Route: 055
  6. CLOZAPINE [Suspect]
     Route: 048
  7. CLOZAPINE [Suspect]
     Route: 048
  8. ZYPREXA [Concomitant]
     Route: 048
  9. LAMICTAL [Concomitant]
     Route: 048
  10. SIMVASTATIN [Concomitant]
     Route: 048
  11. FUROSEMIDE [Concomitant]
     Route: 048
  12. OMEPRAZOLE [Concomitant]
     Route: 048
  13. NASACORT [Concomitant]
     Route: 055

REACTIONS (1)
  - DEATH [None]
